FAERS Safety Report 9868113 (Version 1)
Quarter: 2014Q1

REPORT INFORMATION
  Report Type: Spontaneous
  Country: NO (occurrence: NO)
  Receive Date: 20140204
  Receipt Date: 20140204
  Transmission Date: 20141002
  Serious: Yes (Life-Threatening, Hospitalization, Other)
  Sender: FDA-Public Use
  Company Number: NO-WATSON-2014-01116

PATIENT
  Age: 18 Year
  Sex: Female

DRUGS (2)
  1. ETOPOSIDE (UNKNOWN) [Suspect]
     Indication: EWING^S SARCOMA METASTATIC
     Dosage: 100 MG/M2, DAILY
     Route: 042
  2. IFOSFAMIDE [Suspect]
     Indication: EWING^S SARCOMA METASTATIC
     Dosage: 1800 MG/M2, DAILY
     Route: 065

REACTIONS (5)
  - Small intestinal perforation [Recovered/Resolved with Sequelae]
  - Abscess [Recovered/Resolved]
  - Toxicity to various agents [Recovered/Resolved]
  - Neutropenia [Recovered/Resolved]
  - Ileus [Recovered/Resolved]
